FAERS Safety Report 6566694-X (Version None)
Quarter: 2010Q1

REPORT INFORMATION
  Report Type: 
  Country: None (occurrence: None)
  Receive Date: 20100202
  Receipt Date: 20100125
  Transmission Date: 20100710
  Serious: Yes (Other)
  Sender: FDA-Public Use
  Company Number: IT-ROCHE-682124

PATIENT
  Age: 55 Year
  Sex: Female

DRUGS (2)
  1. PEGASYS [Suspect]
     Route: 058
     Dates: start: 20051201
  2. COPEGUS [Suspect]
     Route: 065
     Dates: start: 20051201

REACTIONS (1)
  - SYSTEMIC SCLEROSIS PULMONARY [None]
